FAERS Safety Report 10171991 (Version 1)
Quarter: 2014Q2

REPORT INFORMATION
  Report Type: Report from Study
  Country: US (occurrence: US)
  Receive Date: 20140515
  Receipt Date: 20140515
  Transmission Date: 20141212
  Serious: Yes (Other)
  Sender: FDA-Public Use
  Company Number: US-PFIZER INC-2014128953

PATIENT
  Age: 62 Year
  Sex: Female

DRUGS (7)
  1. IBUPROFEN [Suspect]
     Indication: HEADACHE
     Dosage: 600 MG, AS NEEDED
     Route: 048
  2. EFFEXOR XR [Suspect]
     Dosage: 150 MG, UNK
     Route: 048
  3. SUMATRIPTAN SUCCINATE [Suspect]
     Indication: MIGRAINE
     Dosage: 100 MG, AS NECESSSATY, MAY REPEAT IN 2 HOURS, MAX 2 IN 24 HOUR PERIOD
     Route: 048
  4. TOPAMAX [Suspect]
     Dosage: 100 MG, UNK
     Route: 048
  5. ZOMIG [Suspect]
     Indication: MIGRAINE
     Dosage: 5 MG, AS NECESSARY 1 TAB AT ONSET OF MIGRAINE AND MAY REPEAT IN 2 HOURS IF NO RELIEF-MAP
     Route: 048
  6. FAMOTIDINE [Suspect]
     Dosage: 40 MG, 2X/DAY
     Route: 048
  7. IMODIUM [Suspect]
     Indication: DIARRHOEA
     Dosage: 2 MG, AS NEEDED
     Route: 048

REACTIONS (13)
  - Varicose vein [Unknown]
  - Seborrhoeic keratosis [Unknown]
  - Osteopenia [Unknown]
  - Gastrooesophageal reflux disease [Unknown]
  - Anxiety disorder [Unknown]
  - Depression [Unknown]
  - Hyperlipidaemia [Unknown]
  - Skin lesion [Unknown]
  - Migraine [Unknown]
  - Obesity [Unknown]
  - Insomnia [Unknown]
  - Back pain [Unknown]
  - Irritable bowel syndrome [Unknown]
